FAERS Safety Report 18205986 (Version 1)
Quarter: 2020Q3

REPORT INFORMATION
  Report Type: Other
  Country: US (occurrence: US)
  Receive Date: 20200828
  Receipt Date: 20200828
  Transmission Date: 20201103
  Serious: Yes (Hospitalization)
  Sender: FDA-Public Use
  Company Number: US-ORCHID HEALTHCARE-2089123

PATIENT
  Age: 58 Year
  Sex: Female

DRUGS (2)
  1. LEVOFLOXACIN. [Suspect]
     Active Substance: LEVOFLOXACIN
     Indication: BRONCHITIS
     Route: 065
  2. CIPROFLOXACIN. [Suspect]
     Active Substance: CIPROFLOXACIN
     Route: 065

REACTIONS (2)
  - Recall phenomenon [Recovered/Resolved]
  - Dermatitis [Recovered/Resolved]
